FAERS Safety Report 5396999-X (Version None)
Quarter: 2007Q3

REPORT INFORMATION
  Report Type: 
  Country: None (occurrence: None)
  Receive Date: 20070725
  Receipt Date: 20070717
  Transmission Date: 20080115
  Serious: Yes (Other)
  Sender: FDA-Public Use
  Company Number: US-PURDUE-USA_2007_0028191

PATIENT
  Age: 42 Year
  Sex: Female
  Weight: 61 kg

DRUGS (3)
  1. OXYCONTIN [Suspect]
     Indication: BONE PAIN
     Dosage: 160 MG, TID
     Route: 048
     Dates: start: 20030101, end: 20070401
  2. KLONOPIN [Concomitant]
  3. PERCOCET [Concomitant]

REACTIONS (20)
  - ABDOMINAL PAIN UPPER [None]
  - ALOPECIA [None]
  - ANXIETY [None]
  - CHILLS [None]
  - COLD SWEAT [None]
  - CONSTIPATION [None]
  - DIARRHOEA [None]
  - DISEASE PROGRESSION [None]
  - DRUG INEFFECTIVE [None]
  - DRUG WITHDRAWAL SYNDROME [None]
  - EAR PAIN [None]
  - HISTAMINE ABNORMAL [None]
  - INADEQUATE ANALGESIA [None]
  - IRRITABILITY [None]
  - NAUSEA [None]
  - PRURITUS [None]
  - RHINORRHOEA [None]
  - TREMOR [None]
  - VOMITING [None]
  - WEIGHT INCREASED [None]
